FAERS Safety Report 7553034-2 (Version None)
Quarter: 2011Q2

REPORT INFORMATION
  Report Type: 
  Country: None (occurrence: None)
  Receive Date: 20110616
  Receipt Date: 20110601
  Transmission Date: 20111010
  Serious: Yes (Other)
  Sender: FDA-Public Use
  Company Number: US-BAYER-2011-047613

PATIENT
  Age: 70 Year
  Sex: Male

DRUGS (2)
  1. ASPIRIN [Suspect]
     Dosage: UNK, QD
  2. FEXOFENADINE HCL [Interacting]
     Indication: HYPERSENSITIVITY
     Dosage: 180 MG, QD
     Route: 048
     Dates: start: 20110501

REACTIONS (1)
  - EPISTAXIS [None]
